FAERS Safety Report 10241764 (Version 3)
Quarter: 2015Q1

REPORT INFORMATION
  Report Type: Report from Study
  Country: US (occurrence: US)
  Receive Date: 20140617
  Receipt Date: 20150302
  Transmission Date: 20150720
  Serious: Yes (Other)
  Sender: FDA-Public Use
  Company Number: US-SA-2014SA064269

PATIENT
  Age: 52 Year
  Sex: Female

DRUGS (1)
  1. AUBAGIO [Suspect]
     Active Substance: TERIFLUNOMIDE
     Indication: MULTIPLE SCLEROSIS
     Dosage: DOSE: 14
     Route: 048
     Dates: start: 20140426

REACTIONS (5)
  - Multiple sclerosis relapse [Unknown]
  - Vomiting [Unknown]
  - Paralysis [Unknown]
  - Paraesthesia [Unknown]
  - Abdominal discomfort [Unknown]
